FAERS Safety Report 6834548-7 (Version None)
Quarter: 2010Q3

REPORT INFORMATION
  Report Type: 
  Country: None (occurrence: None)
  Receive Date: 20100712
  Receipt Date: 20070411
  Transmission Date: 20110219
  Serious: No
  Sender: FDA-Public Use
  Company Number: US-PFIZER INC-2007030828

PATIENT
  Sex: Female
  Weight: 108.86 kg

DRUGS (21)
  1. CHANTIX [Suspect]
     Indication: SMOKING CESSATION THERAPY
     Dates: start: 20070322
  2. ALTACE [Concomitant]
  3. MIRTAZAPINE [Concomitant]
  4. WELCHOL [Concomitant]
  5. ZETIA [Concomitant]
  6. LIPITOR [Concomitant]
  7. ASPIRIN [Concomitant]
  8. METOPROLOL [Concomitant]
  9. NORCO [Concomitant]
  10. XANAX [Concomitant]
  11. VALIUM [Concomitant]
  12. PREMARIN [Concomitant]
  13. GLYCERYL TRINITRATE [Concomitant]
  14. FOLIC ACID [Concomitant]
  15. FISH OIL [Concomitant]
  16. CENTRUM SILVER [Concomitant]
  17. VITAMIN C [Concomitant]
  18. NORVASC [Concomitant]
  19. ACIPHEX [Concomitant]
  20. MAALOX [Concomitant]
  21. PLAVIX [Concomitant]

REACTIONS (5)
  - DRUG INEFFECTIVE [None]
  - DYSGEUSIA [None]
  - DYSPEPSIA [None]
  - MUSCLE SPASMS [None]
  - NAUSEA [None]
